FAERS Safety Report 6069008-7 (Version None)
Quarter: 2009Q1

REPORT INFORMATION
  Report Type: 
  Country: None (occurrence: None)
  Receive Date: 20090206
  Receipt Date: 20090202
  Transmission Date: 20090719
  Serious: Yes (Other)
  Sender: FDA-Public Use
  Company Number: GR-ELI_LILLY_AND_COMPANY-GR200902000395

PATIENT
  Age: 63 Year
  Sex: Male
  Weight: 82.5 kg

DRUGS (6)
  1. BYETTA [Suspect]
     Indication: DIABETES MELLITUS
     Dosage: 5 UG, 2/D
     Route: 058
     Dates: start: 20080304, end: 20080708
  2. BYETTA [Suspect]
     Dosage: 10 UG, 2/D
     Route: 058
     Dates: start: 20080709, end: 20090131
  3. RENITEC [Concomitant]
     Indication: HYPERTENSION
     Dosage: UNK, UNKNOWN
     Route: 048
  4. LIPITOR [Concomitant]
     Indication: HYPERCHOLESTEROLAEMIA
     Dosage: UNK, UNKNOWN
     Route: 048
  5. DIAMICRON [Concomitant]
     Indication: DIABETES MELLITUS
     Dosage: 1 D/F, DAILY (1/D)
     Route: 048
  6. GLUCOPHAGE [Concomitant]
     Indication: DIABETES MELLITUS
     Dosage: 1 D/F, DAILY (1/D)
     Route: 048

REACTIONS (1)
  - PANCREATITIS [None]
